FAERS Safety Report 16731012 (Version 2)
Quarter: 2019Q3

REPORT INFORMATION
  Report Type: Spontaneous
  Country: US (occurrence: US)
  Receive Date: 20190822
  Receipt Date: 20190827
  Transmission Date: 20191005
  Serious: No
  Sender: FDA-Public Use
  Company Number: US-PFIZER INC-2018391337

PATIENT
  Age: 69 Year
  Sex: Female
  Weight: 65.31 kg

DRUGS (3)
  1. LYRICA [Suspect]
     Active Substance: PREGABALIN
     Dosage: 75 MG, 3X/DAY
  2. LYRICA [Suspect]
     Active Substance: PREGABALIN
     Dosage: (75-150 MG TOTAL/1-2 CAPSULES; MAX 4 CAPS/DAY)
     Route: 048
  3. LYRICA [Suspect]
     Active Substance: PREGABALIN
     Indication: CERVICAL RADICULOPATHY
     Dosage: 75 MG, 2X/DAY

REACTIONS (2)
  - Drug ineffective [Unknown]
  - Intentional product misuse [Unknown]
